FAERS Safety Report 18856675 (Version 1)
Quarter: 2021Q1

REPORT INFORMATION
  Report Type: Spontaneous
  Country: BR (occurrence: BR)
  Receive Date: 20210207
  Receipt Date: 20210207
  Transmission Date: 20210420
  Serious: Yes (Life-Threatening, Hospitalization, Other)
  Sender: FDA-Public Use
  Company Number: BR-TAKEDA-2021TUS006542

PATIENT
  Sex: Male
  Weight: 70 kg

DRUGS (1)
  1. VENVANSE [Suspect]
     Active Substance: LISDEXAMFETAMINE DIMESYLATE
     Indication: PRODUCT USED FOR UNKNOWN INDICATION
     Dosage: 70 MILLIGRAM
     Route: 065

REACTIONS (6)
  - Intentional overdose [Unknown]
  - Suicide attempt [Unknown]
  - Syncope [Unknown]
  - Diarrhoea [Unknown]
  - Coma [Unknown]
  - Confusional state [Unknown]
